FAERS Safety Report 15301075 (Version 2)
Quarter: 2018Q3

REPORT INFORMATION
  Report Type: Report from Study
  Country: None (occurrence: DE)
  Receive Date: 20180821
  Receipt Date: 20180823
  Transmission Date: 20181010
  Serious: Yes (Death, Hospitalization)
  Sender: FDA-Public Use
  Company Number: DE-ABBVIE-18S-062-2456369-00

PATIENT
  Age: 79 Year
  Sex: Male

DRUGS (5)
  1. PALEXIA [Concomitant]
     Active Substance: TAPENTADOL HYDROCHLORIDE
     Indication: PRODUCT USED FOR UNKNOWN INDICATION
  2. RIVOTRIL [Concomitant]
     Active Substance: CLONAZEPAM
     Indication: PRODUCT USED FOR UNKNOWN INDICATION
  3. DUODOPA [Suspect]
     Active Substance: CARBIDOPA\LEVODOPA
     Indication: PARKINSON^S DISEASE
     Dosage: MD 7ML, CRD 5.2ML/H, CRN 4.7ML/H, ED  4ML
     Route: 050
     Dates: start: 20140908
  4. OMEPRAZOL [Concomitant]
     Active Substance: OMEPRAZOLE
     Indication: PRODUCT USED FOR UNKNOWN INDICATION
  5. BISABOLOL [Concomitant]
     Indication: PRODUCT USED FOR UNKNOWN INDICATION

REACTIONS (3)
  - Femoral neck fracture [Not Recovered/Not Resolved]
  - Device dislocation [Unknown]
  - Bronchitis [Fatal]

NARRATIVE: CASE EVENT DATE: 2018
